FAERS Safety Report 16053676 (Version 2)
Quarter: 2019Q2

REPORT INFORMATION
  Report Type: Spontaneous
  Country: FR (occurrence: FR)
  Receive Date: 20190308
  Receipt Date: 20190409
  Transmission Date: 20190711
  Serious: Yes (Hospitalization)
  Sender: FDA-Public Use
  Company Number: FR-MYLANLABS-2019M1021394

PATIENT
  Age: 33 Year
  Sex: Male
  Weight: 86 kg

DRUGS (1)
  1. LEVOFLOXACIN. [Suspect]
     Active Substance: LEVOFLOXACIN
     Indication: TONSILLITIS
     Dosage: 1000 MILLIGRAM
     Dates: start: 20180709, end: 20180714

REACTIONS (2)
  - Partial seizures [Recovered/Resolved with Sequelae]
  - Myoclonus [Recovered/Resolved with Sequelae]

NARRATIVE: CASE EVENT DATE: 20180721
